FAERS Safety Report 4277331-1 (Version None)
Quarter: 2004Q1

REPORT INFORMATION
  Report Type: 
  Country: None (occurrence: None)
  Receive Date: 20040121
  Receipt Date: 20040121
  Transmission Date: 20041129
  Serious: Yes (Hospitalization)
  Sender: FDA-Public Use
  Company Number: None

PATIENT
  Age: 78 Year
  Sex: Male
  Weight: 85 kg

DRUGS (9)
  1. SPIRONOLACTONE [Suspect]
     Indication: CARDIAC FAILURE CONGESTIVE
     Dosage: 25 MG QD ORAL
     Route: 048
     Dates: start: 20030130, end: 20040116
  2. LISINOPRIL [Suspect]
     Indication: CARDIAC FAILURE CONGESTIVE
     Dosage: 2.5 MG QD ORAL
     Route: 048
     Dates: start: 19990428, end: 20040116
  3. ASPIRIN [Concomitant]
  4. FUROSEMIDE [Concomitant]
  5. LISINOPRIL [Concomitant]
  6. MIRTAZAPINE [Concomitant]
  7. M.V.I. [Concomitant]
  8. SPIRONOLACTONE [Concomitant]
  9. TRAZODONE HCL [Concomitant]

REACTIONS (4)
  - DEHYDRATION [None]
  - HYPERKALAEMIA [None]
  - HYPOVOLAEMIA [None]
  - RENAL IMPAIRMENT [None]
